FAERS Safety Report 4307000-0 (Version None)
Quarter: 2004Q1

REPORT INFORMATION
  Report Type: 
  Country: None (occurrence: None)
  Receive Date: 20040227
  Receipt Date: 20040227
  Transmission Date: 20041129
  Serious: Yes (Other)
  Sender: FDA-Public Use
  Company Number: None

PATIENT
  Age: 31 Year
  Sex: Male
  Weight: 62.1428 kg

DRUGS (7)
  1. GEODON [Suspect]
     Indication: FEAR
     Dosage: 20MG IM BID IF REFUSES PO DOSE
     Route: 030
     Dates: start: 20040119
  2. GEODON [Suspect]
     Indication: MAJOR DEPRESSION
     Dosage: 20MG IM BID IF REFUSES PO DOSE
     Route: 030
     Dates: start: 20040119
  3. GEODON [Suspect]
     Indication: PSYCHOTIC DISORDER
     Dosage: 20MG IM BID IF REFUSES PO DOSE
     Route: 030
     Dates: start: 20040119
  4. GEODON [Suspect]
     Indication: FEAR
     Dosage: 20MG IM BID IF REFUSES PO DOSE
     Route: 030
     Dates: start: 20040121
  5. GEODON [Suspect]
     Indication: MAJOR DEPRESSION
     Dosage: 20MG IM BID IF REFUSES PO DOSE
     Route: 030
     Dates: start: 20040121
  6. GEODON [Suspect]
     Indication: PSYCHOTIC DISORDER
     Dosage: 20MG IM BID IF REFUSES PO DOSE
     Route: 030
     Dates: start: 20040121
  7. LEXAPRO [Concomitant]

REACTIONS (3)
  - OXYGEN SATURATION DECREASED [None]
  - RESPIRATORY RATE DECREASED [None]
  - TREMOR [None]
